FAERS Safety Report 8440739-4 (Version None)
Quarter: 2012Q2

REPORT INFORMATION
  Report Type: 
  Country: None (occurrence: None)
  Receive Date: 20120615
  Receipt Date: 20120606
  Transmission Date: 20120825
  Serious: Yes (Other)
  Sender: FDA-Public Use
  Company Number: US-CELGENEUS-163-21660-12061208

PATIENT

DRUGS (3)
  1. ABRAXANE [Suspect]
     Route: 041
  2. ERLOTINIB HYDROCHLORIDE [Suspect]
     Route: 065
  3. GEMCITABINE [Suspect]
     Route: 041

REACTIONS (9)
  - NEUTROPENIA [None]
  - OPTIC NEUROPATHY [None]
  - OESOPHAGITIS [None]
  - DIARRHOEA [None]
  - SEPSIS [None]
  - DEHYDRATION [None]
  - TRANSAMINASES INCREASED [None]
  - THROMBOCYTOPENIA [None]
  - HYPOTENSION [None]
